FAERS Safety Report 8849309 (Version 1)
Quarter: 2012Q4

REPORT INFORMATION
  Report Type: 
  Country: US (occurrence: US)
  Receive Date: 20121017
  Receipt Date: 20121017
  Transmission Date: 20130627
  Serious: Yes (Hospitalization)
  Sender: FDA-Public Use
  Company Number: US-UCBSA-068629

PATIENT
  Sex: Male

DRUGS (13)
  1. CIMZIA [Suspect]
     Indication: CROHN^S DISEASE
  2. CIMZIA [Suspect]
     Indication: CROHN^S DISEASE
  3. PHENERGAN [Concomitant]
  4. TRAMADOL [Concomitant]
  5. CENTRUM MVI [Concomitant]
  6. TUMS [Concomitant]
  7. CEPHAXALIN [Concomitant]
  8. VITAMIN K [Concomitant]
  9. ASPIRIN [Concomitant]
  10. WALLITIN [Concomitant]
  11. HYDROCODONE [Concomitant]
  12. METRONIDAZOLE [Concomitant]
     Dosage: 500 MG
  13. PRECHLORPERAZINE [Concomitant]

REACTIONS (1)
  - Furuncle [Unknown]
